FAERS Safety Report 8577518-3 (Version None)
Quarter: 2012Q3

REPORT INFORMATION
  Report Type: 
  Country: None (occurrence: None)
  Receive Date: 20120725
  Receipt Date: 20120711
  Transmission Date: 20120928
  Serious: Yes (Hospitalization)
  Sender: FDA-Public Use
  Company Number: 2012AP002091

PATIENT
  Age: 69 Year
  Sex: Female

DRUGS (6)
  1. METHOTREXATE [Concomitant]
  2. ALENDRONATE SODIUM [Suspect]
     Indication: OSTEOPOROSIS
     Dosage: 70 MG; QW  PO
     Route: 048
     Dates: start: 20050101, end: 20120612
  3. ESOMEPRAZOLE MAGNESIUM [Concomitant]
  4. BISOPROLOL FUMARATE [Concomitant]
  5. FOLIC ACID [Concomitant]
  6. FELODIPINE [Concomitant]

REACTIONS (1)
  - ATYPICAL FEMUR FRACTURE [None]
